FAERS Safety Report 10202880 (Version 1)
Quarter: 2014Q2

REPORT INFORMATION
  Report Type: Spontaneous
  Country: US (occurrence: US)
  Receive Date: 20140528
  Receipt Date: 20140528
  Transmission Date: 20141212
  Serious: No
  Sender: FDA-Public Use
  Company Number: US-GILEAD-2014-0103076

PATIENT
  Sex: Female

DRUGS (3)
  1. SOVALDI [Suspect]
     Indication: HEPATITIS C
     Dosage: UNK
     Route: 065
     Dates: start: 20140318
  2. RIBAVIRIN [Concomitant]
     Dosage: UNK
     Dates: start: 20140318
  3. FLUOXETINE [Concomitant]

REACTIONS (3)
  - Oral pain [Unknown]
  - Aphonia [Unknown]
  - Blood test abnormal [Unknown]
